FAERS Safety Report 8059511-2 (Version None)
Quarter: 2012Q1

REPORT INFORMATION
  Report Type: 
  Country: None (occurrence: None)
  Receive Date: 20120120
  Receipt Date: 20120106
  Transmission Date: 20120608
  Serious: Yes (Hospitalization)
  Sender: FDA-Public Use
  Company Number: TW-ROCHE-1032093

PATIENT
  Sex: Female
  Weight: 59 kg

DRUGS (13)
  1. PEGINTERFERON ALFA-2A [Suspect]
     Indication: HEPATITIS C
     Route: 042
     Dates: start: 20110928, end: 20120110
  2. BISOPROLOL FUMARATE [Concomitant]
     Route: 048
     Dates: start: 20120112
  3. FERROUS GLUCO-B [Concomitant]
     Dates: start: 20111012, end: 20111130
  4. IRBESARTAN [Concomitant]
     Indication: HYPERTENSION
     Route: 048
     Dates: start: 20110919
  5. FAMOTIDINE [Concomitant]
     Dates: start: 20110928, end: 20110930
  6. MOSAPRIDE [Concomitant]
     Dates: start: 20111012, end: 20111013
  7. ALBUTEROL SULFATE AUTOHALER [Concomitant]
     Dates: start: 20111011, end: 20111014
  8. PROPRANOLOL [Concomitant]
     Indication: HYPERTENSION
     Route: 048
     Dates: start: 20110715
  9. BISOPROLOL FUMARATE [Concomitant]
     Indication: HYPERTENSION
     Route: 048
     Dates: start: 20110715
  10. BISOPROLOL FUMARATE [Concomitant]
     Route: 048
     Dates: start: 20120106
  11. BENZONATATE [Concomitant]
     Dates: start: 20111011, end: 20111014
  12. BLINDED BI 201335 (HCV PROTEASE INHIBITOR) [Suspect]
     Indication: HEPATITIS C
     Route: 048
     Dates: start: 20110928
  13. COPEGUS [Suspect]
     Indication: HEPATITIS C
     Route: 048
     Dates: start: 20110928

REACTIONS (1)
  - PERICHONDRITIS [None]
